FAERS Safety Report 19157650 (Version 1)
Quarter: 2021Q2

REPORT INFORMATION
  Report Type: Spontaneous
  Country: US (occurrence: US)
  Receive Date: 20210417
  Receipt Date: 20210417
  Transmission Date: 20210717
  Serious: No
  Sender: FDA-Public Use
  Company Number: None

PATIENT

DRUGS (1)
  1. ELIQUIS [Suspect]
     Active Substance: APIXABAN
     Indication: DEEP VEIN THROMBOSIS
     Dosage: ?          QUANTITY:5 MG MILLIGRAM(S);?
     Route: 048
     Dates: start: 20190117

REACTIONS (10)
  - Necrosis [None]
  - Drug monitoring procedure not performed [None]
  - Bladder disorder [None]
  - Thrombosis [None]
  - Muscle spasms [None]
  - Haemorrhage [None]
  - Erectile dysfunction [None]
  - Pain [None]
  - Asthenia [None]
  - Vascular insufficiency [None]
